FAERS Safety Report 13183669 (Version 1)
Quarter: 2017Q1

REPORT INFORMATION
  Report Type: Spontaneous
  Country: US (occurrence: US)
  Receive Date: 20170203
  Receipt Date: 20170203
  Transmission Date: 20170428
  Serious: No
  Sender: FDA-Public Use
  Company Number: US-TEVA-727932ACC

PATIENT
  Age: 78 Year
  Sex: Female
  Weight: 65.83 kg

DRUGS (1)
  1. MIRTAZAPINE TABLETS [Suspect]
     Active Substance: MIRTAZAPINE
     Indication: DEPRESSION
     Dates: start: 201610

REACTIONS (7)
  - Diarrhoea [Unknown]
  - Nervousness [Unknown]
  - Hyperhidrosis [Unknown]
  - Feeling jittery [Unknown]
  - Decreased appetite [Unknown]
  - Therapeutic response unexpected [Unknown]
  - Tremor [Unknown]

NARRATIVE: CASE EVENT DATE: 201610
